FAERS Safety Report 6917253-8 (Version None)
Quarter: 2010Q3

REPORT INFORMATION
  Report Type: 
  Country: None (occurrence: None)
  Receive Date: 20100805
  Receipt Date: 20100727
  Transmission Date: 20110219
  Serious: Yes (Hospitalization)
  Sender: FDA-Public Use
  Company Number: 656618

PATIENT
  Age: 71 Year
  Sex: Female
  Weight: 54 kg

DRUGS (5)
  1. CARBOPLATIN [Suspect]
     Indication: OVARIAN CANCER
     Dosage: 472 MG MILLIGRAM(S), INTRAVENOUS
     Route: 042
     Dates: start: 20100702, end: 20100702
  2. PACLITAXEL [Suspect]
     Indication: OVARIAN CANCER
     Dosage: 283 MG MILLIGRAM(S), INTRAVENOUS
     Route: 042
     Dates: start: 20100702, end: 20100702
  3. (PARACETAMOL) [Concomitant]
  4. ESTRADIOL [Concomitant]
  5. (CALCIUM) [Concomitant]

REACTIONS (1)
  - COUGH [None]
